FAERS Safety Report 13812625 (Version 1)
Quarter: 2017Q3

REPORT INFORMATION
  Report Type: Spontaneous
  Country: ZA (occurrence: ZA)
  Receive Date: 20170728
  Receipt Date: 20170728
  Transmission Date: 20171127
  Serious: Yes (Other)
  Sender: FDA-Public Use
  Company Number: ZA-MYLANLABS-2017M1029887

PATIENT

DRUGS (2)
  1. MACRODANTIN [Suspect]
     Active Substance: NITROFURANTOIN
     Indication: PROPHYLAXIS
     Dosage: 100 MG, UNK
  2. MYLAN OXYBUTYNIN 5 MG [Suspect]
     Active Substance: OXYBUTYNIN
     Indication: BLADDER DISORDER
     Dosage: 5 MG, UNK
     Dates: start: 20161122

REACTIONS (1)
  - Bladder prolapse [Unknown]
